FAERS Safety Report 8455364-9 (Version None)
Quarter: 2012Q2

REPORT INFORMATION
  Report Type: 
  Country: None (occurrence: None)
  Receive Date: 20120621
  Receipt Date: 20120618
  Transmission Date: 20120825
  Serious: Yes (Death)
  Sender: FDA-Public Use
  Company Number: US-CELGENEUS-163-21880-12052618

PATIENT
  Sex: Male

DRUGS (4)
  1. FLUIDS [Concomitant]
     Indication: DEHYDRATION
     Route: 041
  2. REVLIMID [Suspect]
     Indication: MULTIPLE MYELOMA
     Dosage: 15 MILLIGRAM
     Route: 048
     Dates: start: 20111001
  3. REVLIMID [Suspect]
     Dosage: 25 MILLIGRAM
     Route: 048
     Dates: start: 20111201
  4. DEXAMETHASONE SODIUM POSPHATE [Concomitant]
     Route: 065

REACTIONS (1)
  - TYPE 1 DIABETES MELLITUS [None]
